FAERS Safety Report 9924484 (Version 2)
Quarter: 2014Q1

REPORT INFORMATION
  Report Type: Spontaneous
  Country: US (occurrence: US)
  Receive Date: 20140226
  Receipt Date: 20140226
  Transmission Date: 20141002
  Serious: Yes (Hospitalization)
  Sender: FDA-Public Use
  Company Number: US-ASTELLAS-2011US002497

PATIENT
  Age: 40 Year
  Sex: Female

DRUGS (2)
  1. PROGRAF [Suspect]
     Indication: RENAL TRANSPLANT
     Dosage: 3.5 MG, BID
     Route: 048
     Dates: start: 20090731
  2. PROGRAF [Suspect]
     Dosage: 8 MG, UID/QD
     Route: 048

REACTIONS (4)
  - Wrong technique in drug usage process [Unknown]
  - Leg amputation [Recovering/Resolving]
  - Renal failure [Recovering/Resolving]
  - Impaired gastric emptying [Unknown]
